FAERS Safety Report 10230997 (Version 1)
Quarter: 2014Q2

REPORT INFORMATION
  Report Type: Spontaneous
  Country: US (occurrence: None)
  Receive Date: 20140506
  Receipt Date: 20140506
  Transmission Date: 20141212
  Serious: Yes (Hospitalization)
  Sender: FDA-Public Use
  Company Number: 1338606

PATIENT
  Age: 76 Year
  Sex: Male

DRUGS (1)
  1. AVASTIN (BEVACIZUMAB) [Suspect]
     Indication: LUNG CARCINOMA CELL TYPE UNSPECIFIED STAGE IV
     Dosage: EVERY 3 WEEKS, UNKNOWN

REACTIONS (2)
  - Pneumonia [None]
  - Dyspnoea [None]
